FAERS Safety Report 5696903-0 (Version None)
Quarter: 2008Q2

REPORT INFORMATION
  Report Type: 
  Country: None (occurrence: None)
  Receive Date: 20080408
  Receipt Date: 20070109
  Transmission Date: 20081010
  Serious: No
  Sender: FDA-Public Use
  Company Number: US-BAYER-US-2007-000824

PATIENT
  Age: 26 Year
  Sex: Female
  Weight: 48 kg

DRUGS (3)
  1. YASMIN [Suspect]
     Indication: CONTRACEPTION
     Route: 048
     Dates: start: 20061001
  2. ZYRTEC [Concomitant]
  3. ALBUTEROL [Concomitant]

REACTIONS (3)
  - BREAST TENDERNESS [None]
  - METRORRHAGIA [None]
  - NAUSEA [None]
